FAERS Safety Report 7562937-4 (Version None)
Quarter: 2011Q2

REPORT INFORMATION
  Report Type: 
  Country: None (occurrence: None)
  Receive Date: 20110622
  Receipt Date: 20110607
  Transmission Date: 20111010
  Serious: Yes (Hospitalization)
  Sender: FDA-Public Use
  Company Number: US-ROCHE-783456

PATIENT
  Sex: Female

DRUGS (3)
  1. PACLITAXEL [Suspect]
     Indication: OVARIAN CANCER
     Dosage: OVER 1 HR ON DAYS 1, 8 + 15.
     Route: 042
     Dates: start: 20100106
  2. BEVACIZUMAB [Suspect]
     Indication: OVARIAN CANCER
     Dosage: PHASE A OVER 30-90 MIN ON DAY 1, 3 WKS CYCLE, (1-6 CYCLES) AND PHASE B (7-22 CYCLES)
     Route: 042
     Dates: start: 20100106
  3. CARBOPLATIN [Suspect]
     Indication: OVARIAN CANCER
     Dosage: AUC 6 IP ON DAY 1
     Route: 033
     Dates: start: 20100106

REACTIONS (1)
  - RECTAL STENOSIS [None]
